FAERS Safety Report 8309598-4 (Version None)
Quarter: 2012Q1

REPORT INFORMATION
  Report Type: 
  Country: None (occurrence: None)
  Receive Date: 20120315
  Receipt Date: 20110607
  Transmission Date: 20120608
  Serious: No
  Sender: FDA-Public Use
  Company Number: PHHY2011US44777

PATIENT
  Age: 45 Year
  Sex: Female

DRUGS (3)
  1. MUSCLE RELAXANTS (NO INGREDIENTS/SUBSTANCES) [Concomitant]
  2. GILENYA [Suspect]
     Indication: MULTIPLE SCLEROSIS
     Dosage: 0.5 MG, QD, ORAL
     Route: 048
     Dates: start: 20110506
  3. BALOFEN (BACLOFEN) [Concomitant]

REACTIONS (4)
  - BALANCE DISORDER [None]
  - ASTHENIA [None]
  - FATIGUE [None]
  - GAIT DISTURBANCE [None]
